FAERS Safety Report 9931712 (Version 2)
Quarter: 2014Q1

REPORT INFORMATION
  Report Type: Spontaneous
  Country: CN (occurrence: CN)
  Receive Date: 20140228
  Receipt Date: 20140228
  Transmission Date: 20141002
  Serious: No
  Sender: FDA-Public Use
  Company Number: CN-JNJFOC-20120911748

PATIENT
  Sex: Female

DRUGS (1)
  1. SPORANOX [Suspect]
     Indication: EXPOSURE VIA BODY FLUID
     Route: 048
     Dates: start: 20120607, end: 20120815

REACTIONS (1)
  - Exposure during pregnancy [Unknown]
